FAERS Safety Report 8161558-2 (Version None)
Quarter: 2012Q1

REPORT INFORMATION
  Report Type: 
  Country: None (occurrence: None)
  Receive Date: 20120224
  Receipt Date: 20120216
  Transmission Date: 20120608
  Serious: Yes (Hospitalization, Other)
  Sender: FDA-Public Use
  Company Number: US-BAYER-200935141NA

PATIENT
  Age: 22 Year
  Sex: Female
  Weight: 68.027 kg

DRUGS (7)
  1. NAPROXEN (ALEVE) [Concomitant]
  2. NAPROSYN [Concomitant]
  3. VIRAL VACCINES [Concomitant]
     Dosage: UNK
     Dates: start: 20081002, end: 20081002
  4. IBUPROFEN (ADVIL) [Concomitant]
  5. YAZ [Suspect]
     Indication: PRODUCT USED FOR UNKNOWN INDICATION
     Dosage: 1 DF (DAILY DOSE), , ORAL
     Route: 048
     Dates: start: 20071121, end: 20081210
  6. VIRAL VACCINES [Concomitant]
     Dosage: UNK
     Dates: start: 20081204, end: 20081204
  7. IBUPROFEN [Concomitant]

REACTIONS (8)
  - FATIGUE [None]
  - ASTHENIA [None]
  - ANHEDONIA [None]
  - PULMONARY EMBOLISM [None]
  - ANXIETY [None]
  - DEEP VEIN THROMBOSIS [None]
  - GENERAL PHYSICAL HEALTH DETERIORATION [None]
  - PAIN [None]
